FAERS Safety Report 23815919 (Version 1)
Quarter: 2024Q2

REPORT INFORMATION
  Report Type: Spontaneous
  Country: US (occurrence: US)
  Receive Date: 20240503
  Receipt Date: 20240503
  Transmission Date: 20240716
  Serious: No
  Sender: FDA-Public Use
  Company Number: US-AMGEN-USASP2024087144

PATIENT
  Sex: Female

DRUGS (1)
  1. MVASI [Suspect]
     Active Substance: BEVACIZUMAB-AWWB
     Indication: Vulval cancer
     Dosage: DOSE ORDERED: 800 MG
     Route: 065

REACTIONS (2)
  - Off label use [Unknown]
  - Therapy interrupted [Unknown]
